FAERS Safety Report 24869520 (Version 3)
Quarter: 2025Q3

REPORT INFORMATION
  Report Type: Spontaneous
  Country: TH (occurrence: TH)
  Receive Date: 20250121
  Receipt Date: 20250721
  Transmission Date: 20251021
  Serious: Yes (Hospitalization, Other)
  Sender: PFIZER
  Company Number: TH-PFIZER INC-202500011530

PATIENT
  Age: 72 Year
  Sex: Female
  Weight: 36 kg

DRUGS (8)
  1. VYNDAMAX [Suspect]
     Active Substance: TAFAMIDIS
     Indication: Hereditary ATTR amyloid cardiomyopathy
     Dosage: 61 MG, 1X/DAY
     Route: 048
     Dates: start: 20221018, end: 20250117
  2. FUROSEMIDE [Concomitant]
     Active Substance: FUROSEMIDE
     Dosage: (40) 0.5 X 1 IF BW MORE THEN 39 KG
  3. FUROSEMIDE [Concomitant]
     Active Substance: FUROSEMIDE
     Dosage: 1 WEEK BEFORE EVENT USE 2 TIMES
  4. SPIRONOLACTONE [Concomitant]
     Active Substance: SPIRONOLACTONE
     Dosage: (25) 1X1 PO PC
     Route: 048
  5. FOLIC ACID [Concomitant]
     Active Substance: FOLIC ACID
     Dosage: (5) 1X1 PO PC
     Route: 048
  6. FERROUS SULFATE [Concomitant]
     Active Substance: FERROUS SULFATE
     Dosage: (200) 1X1 PO PC
     Route: 048
  7. CYANOCOBALAMIN\PYRIDOXINE\THIAMINE [Concomitant]
     Active Substance: CYANOCOBALAMIN\PYRIDOXINE\THIAMINE
     Dosage: 1X1 PO PC
     Route: 048
  8. VITAMIN C [Concomitant]
     Active Substance: ASCORBIC ACID
     Dosage: (50) 4-5 TABLETS X1 PO PC
     Route: 048

REACTIONS (4)
  - Ischaemic stroke [Recovering/Resolving]
  - Hemiparesis [Recovering/Resolving]
  - Altered state of consciousness [Recovering/Resolving]
  - Urinary tract infection [Unknown]

NARRATIVE: CASE EVENT DATE: 20250116
